FAERS Safety Report 6688072-5 (Version None)
Quarter: 2010Q2

REPORT INFORMATION
  Report Type: 
  Country: None (occurrence: None)
  Receive Date: 20100420
  Receipt Date: 20100415
  Transmission Date: 20101027
  Serious: Yes (Death, Other)
  Sender: FDA-Public Use
  Company Number: PHHY2010US01090

PATIENT
  Sex: Male
  Weight: 67.029 kg

DRUGS (2)
  1. EXJADE [Suspect]
     Indication: LYMPHATIC DISORDER
     Dosage: 1500 MG, QD
     Route: 048
     Dates: start: 20091021
  2. EXJADE [Suspect]
     Indication: BLOOD DISORDER

REACTIONS (2)
  - MALIGNANT NEOPLASM PROGRESSION [None]
  - SUBDURAL HAEMATOMA [None]
